FAERS Safety Report 8804362 (Version 1)
Quarter: 2012Q4

REPORT INFORMATION
  Report Type: 
  Country: FR (occurrence: FR)
  Receive Date: 20120924
  Receipt Date: 20120924
  Transmission Date: 20130627
  Serious: Yes (Other)
  Sender: FDA-Public Use
  Company Number: FR-PFIZER INC-2012086922

PATIENT
  Age: 3 Year
  Sex: Male

DRUGS (1)
  1. ADVIL [Suspect]
     Dosage: UNK, 3 intakes per day

REACTIONS (2)
  - Self injurious behaviour [Unknown]
  - Hallucination [Unknown]
